FAERS Safety Report 7600289-1 (Version None)
Quarter: 2011Q3

REPORT INFORMATION
  Report Type: 
  Country: None (occurrence: None)
  Receive Date: 20110711
  Receipt Date: 20110703
  Transmission Date: 20111222
  Serious: Yes (Other)
  Sender: FDA-Public Use
  Company Number: US-JNJFOC-20110702350

PATIENT
  Sex: Male
  Weight: 86.18 kg

DRUGS (2)
  1. LEVAQUIN [Suspect]
     Dosage: 6 TABLETS
     Route: 048
     Dates: start: 20110501, end: 20110601
  2. LEVAQUIN [Suspect]
     Indication: LOCALISED INFECTION
     Dosage: TOOK REMAINING FOUR TABLETS FOR 4 MORE DAYS
     Route: 048
     Dates: start: 20110601, end: 20110601

REACTIONS (3)
  - ASTHENIA [None]
  - ABASIA [None]
  - MUSCULAR WEAKNESS [None]
